FAERS Safety Report 6180415-4 (Version None)
Quarter: 2009Q2

REPORT INFORMATION
  Report Type: 
  Country: None (occurrence: None)
  Receive Date: 20090506
  Receipt Date: 20090430
  Transmission Date: 20091009
  Serious: No
  Sender: FDA-Public Use
  Company Number: US-JNJFOC-20090500644

PATIENT
  Sex: Male
  Weight: 73.48 kg

DRUGS (6)
  1. DURAGESIC-100 [Suspect]
     Indication: BACK PAIN
     Dosage: TWO 100 UG/HR PATCHES
     Route: 062
  2. PREVACID [Concomitant]
     Route: 048
  3. CYMBALTA [Concomitant]
     Indication: FIBROMYALGIA
     Route: 048
  4. KLONOPIN [Concomitant]
     Indication: CONVULSION
     Route: 048
  5. HYDROMORPHONE HCL [Concomitant]
     Indication: BREAKTHROUGH PAIN
     Route: 048
  6. SOMA [Concomitant]
     Route: 048

REACTIONS (4)
  - DRUG INEFFECTIVE [None]
  - INADEQUATE ANALGESIA [None]
  - INAPPROPRIATE SCHEDULE OF DRUG ADMINISTRATION [None]
  - NAUSEA [None]
